FAERS Safety Report 14184079 (Version 1)
Quarter: 2017Q4

REPORT INFORMATION
  Report Type: Spontaneous
  Country: TH (occurrence: TH)
  Receive Date: 20171113
  Receipt Date: 20171113
  Transmission Date: 20180321
  Serious: Yes (Death, Other)
  Sender: FDA-Public Use
  Company Number: TH-NORTHSTAR HEALTHCARE HOLDINGS-TH-2017NSR000233

PATIENT
  Age: 31 Year
  Sex: Male
  Weight: 94 kg

DRUGS (1)
  1. PROPRANOLOL HYDROCHLORIDE. [Suspect]
     Active Substance: PROPRANOLOL HYDROCHLORIDE
     Indication: PRODUCT USED FOR UNKNOWN INDICATION
     Dosage: 6 G, SINGLE
     Route: 048

REACTIONS (5)
  - Cardiac arrest [Fatal]
  - Completed suicide [Fatal]
  - Toxicity to various agents [Fatal]
  - Poisoning deliberate [Unknown]
  - Intentional overdose [Fatal]
